FAERS Safety Report 7303703-4 (Version None)
Quarter: 2011Q1

REPORT INFORMATION
  Report Type: 
  Country: None (occurrence: None)
  Receive Date: 20110221
  Receipt Date: 20110207
  Transmission Date: 20110831
  Serious: Yes (Other)
  Sender: FDA-Public Use
  Company Number: DE-BAYER-201037028GPV

PATIENT
  Sex: Female

DRUGS (1)
  1. CIPROBAY [Suspect]
     Indication: PRODUCT USED FOR UNKNOWN INDICATION
     Route: 065

REACTIONS (4)
  - SKIN NECROSIS [None]
  - HYPOAESTHESIA [None]
  - PAIN IN EXTREMITY [None]
  - TENDON PAIN [None]
